FAERS Safety Report 6175337-9 (Version None)
Quarter: 2009Q2

REPORT INFORMATION
  Report Type: 
  Country: None (occurrence: None)
  Receive Date: 20090429
  Receipt Date: 20090414
  Transmission Date: 20091009
  Serious: Yes (Hospitalization)
  Sender: FDA-Public Use
  Company Number: 8044645

PATIENT
  Age: 44 Year
  Sex: Male
  Weight: 78.1 kg

DRUGS (4)
  1. CIMZIA [Suspect]
     Indication: CROHN'S DISEASE
     Dosage: 400 MG 1/2W SC
     Route: 058
     Dates: start: 20090219
  2. PREDNISONE [Concomitant]
  3. TRAMADOL HCL [Concomitant]
  4. IMURAN [Concomitant]

REACTIONS (9)
  - ABDOMINAL PAIN [None]
  - DIARRHOEA [None]
  - FLUID INTAKE REDUCED [None]
  - INFECTION [None]
  - PERICARDIAL EFFUSION [None]
  - PERICARDITIS [None]
  - PNEUMOMEDIASTINUM [None]
  - VOMITING [None]
  - WEIGHT DECREASED [None]
